FAERS Safety Report 8544079-4 (Version None)
Quarter: 2012Q3

REPORT INFORMATION
  Report Type: 
  Country: None (occurrence: None)
  Receive Date: 20120727
  Receipt Date: 20120710
  Transmission Date: 20120928
  Serious: No
  Sender: FDA-Public Use
  Company Number: US-009507513-1207USA007967

PATIENT

DRUGS (2)
  1. CLARITIN [Suspect]
     Indication: PRODUCT USED FOR UNKNOWN INDICATION
     Dosage: UNK, UNKNOWN
     Route: 048
     Dates: start: 20120707
  2. FLONASE [Concomitant]
     Dosage: UNK, QPM
     Route: 045

REACTIONS (1)
  - THERAPEUTIC PRODUCT INEFFECTIVE [None]
